FAERS Safety Report 14506082 (Version 5)
Quarter: 2018Q3

REPORT INFORMATION
  Report Type: Spontaneous
  Country: CU (occurrence: CU)
  Receive Date: 20180208
  Receipt Date: 20180808
  Transmission Date: 20181010
  Serious: Yes (Hospitalization, Other)
  Sender: FDA-Public Use
  Company Number: CU-NOVOPROD-584858

PATIENT
  Age: 18 Year
  Sex: Female
  Weight: 55 kg

DRUGS (5)
  1. ACTRAPID [Suspect]
     Active Substance: INSULIN HUMAN
     Indication: DIABETES MELLITUS
     Dosage: 54 IU, QD
     Route: 058
     Dates: start: 20171005, end: 20171009
  2. INSULATARD NPH HUMAN [Suspect]
     Active Substance: INSULIN HUMAN
     Dosage: UNK
     Route: 058
     Dates: start: 20171012
  3. ACTRAPID [Suspect]
     Active Substance: INSULIN HUMAN
     Dosage: UNK
     Route: 058
     Dates: start: 20171012
  4. INSULATARD NPH HUMAN [Suspect]
     Active Substance: INSULIN HUMAN
     Indication: DIABETES MELLITUS
     Dosage: 14 U, QD
     Route: 058
     Dates: start: 20171005, end: 20171009
  5. ACTRAPID [Suspect]
     Active Substance: INSULIN HUMAN
     Dosage: 14 U (AT A RATE OF 0.2 UXKGXH)
     Route: 058
     Dates: start: 20171009

REACTIONS (5)
  - Urinary tract infection [Not Recovered/Not Resolved]
  - Hyperglycaemia [Recovered/Resolved]
  - Device failure [Unknown]
  - Diabetic ketoacidosis [Not Recovered/Not Resolved]
  - Wrong technique in product usage process [Unknown]

NARRATIVE: CASE EVENT DATE: 20171008
